FAERS Safety Report 26019586 (Version 1)
Quarter: 2025Q4

REPORT INFORMATION
  Report Type: Spontaneous
  Country: US (occurrence: US)
  Receive Date: 20251110
  Receipt Date: 20251110
  Transmission Date: 20260118
  Serious: No
  Sender: Kenvue
  Company Number: US-KENVUE-20251008495

PATIENT
  Sex: Female

DRUGS (12)
  1. ZYRTEC-D [Suspect]
     Active Substance: CETIRIZINE HYDROCHLORIDE\PSEUDOEPHEDRINE HYDROCHLORIDE
     Indication: Upper-airway cough syndrome
     Dosage: UNK
     Route: 065
     Dates: start: 2025
  2. Calcium Magnesium Zinc Vitamin D3 [Concomitant]
     Indication: Product used for unknown indication
     Route: 065
  3. OMEGA-3 FATTY ACIDS [Concomitant]
     Active Substance: OMEGA-3 FATTY ACIDS
     Indication: Product used for unknown indication
     Route: 065
  4. Fruit and vegetable Daily capsule [Concomitant]
     Indication: Product used for unknown indication
     Route: 065
  5. LETROZOLE [Concomitant]
     Active Substance: LETROZOLE
     Indication: Product used for unknown indication
     Route: 065
  6. LOPERAMIDE [Concomitant]
     Active Substance: LOPERAMIDE
     Indication: Product used for unknown indication
     Route: 065
  7. LOSARTAN [Concomitant]
     Active Substance: LOSARTAN
     Indication: Product used for unknown indication
     Route: 065
  8. ZOFRAN [Concomitant]
     Active Substance: ONDANSETRON HYDROCHLORIDE
     Indication: Product used for unknown indication
     Route: 065
  9. TRAMADOL [Concomitant]
     Active Substance: TRAMADOL
     Indication: Product used for unknown indication
     Route: 065
  10. ZOLEDRONIC ACID [Concomitant]
     Active Substance: ZOLEDRONIC ACID
     Indication: Product used for unknown indication
     Route: 042
  11. IBRANCE [Concomitant]
     Active Substance: PALBOCICLIB
     Indication: Breast cancer female
     Dosage: HOLD X 1 WEEK
     Route: 065
  12. IBRANCE [Concomitant]
     Active Substance: PALBOCICLIB
     Dosage: TAKE 1 CAPSULE DAILY FOR 21 DAYS, THEN 7 DAYS OFF
     Route: 065
     Dates: start: 20250809

REACTIONS (1)
  - Product use in unapproved indication [Unknown]

NARRATIVE: CASE EVENT DATE: 20250101
